FAERS Safety Report 4314506-7 (Version None)
Quarter: 2004Q1

REPORT INFORMATION
  Report Type: 
  Country: None (occurrence: None)
  Receive Date: 20040308
  Receipt Date: 20040220
  Transmission Date: 20041129
  Serious: Yes (Other)
  Sender: FDA-Public Use
  Company Number: S04-USA-00917-01

PATIENT
  Age: 38 Year
  Sex: Male

DRUGS (3)
  1. LEXAPRO [Suspect]
     Indication: INSOMNIA
     Dosage: 10 MG QD PO
     Route: 048
     Dates: start: 20030401, end: 20031028
  2. ALCOHOL [Suspect]
  3. LOTREL [Concomitant]

REACTIONS (8)
  - ALCOHOL WITHDRAWAL SYNDROME [None]
  - DRUG HYPERSENSITIVITY [None]
  - GRAND MAL CONVULSION [None]
  - HYPERSOMNIA [None]
  - LOSS OF EMPLOYMENT [None]
  - RASH MACULAR [None]
  - TREMOR [None]
  - VOMITING [None]
